FAERS Safety Report 6668640-7 (Version None)
Quarter: 2010Q3

REPORT INFORMATION
  Report Type: 
  Country: None (occurrence: None)
  Receive Date: 20100401
  Receipt Date: 20100319
  Transmission Date: 20110219
  Serious: Yes (Disabling)
  Sender: FDA-Public Use
  Company Number: 2010AL001809

PATIENT
  Age: 47 Year
  Sex: Female

DRUGS (1)
  1. TRAMADOL HYDROCHLORIDE [Suspect]
     Indication: PROCEDURAL PAIN
     Dosage: 100 MG, TID, PO
     Route: 048
     Dates: start: 20100217, end: 20100217

REACTIONS (4)
  - DEHYDRATION [None]
  - NAUSEA [None]
  - RETCHING [None]
  - VOMITING [None]
